FAERS Safety Report 7542506-2 (Version None)
Quarter: 2011Q2

REPORT INFORMATION
  Report Type: 
  Country: None (occurrence: None)
  Receive Date: 20110524
  Receipt Date: 20110211
  Transmission Date: 20111010
  Serious: No
  Sender: FDA-Public Use
  Company Number: 015504

PATIENT
  Sex: Female
  Weight: 100.7 kg

DRUGS (7)
  1. MESALAMINE [Concomitant]
  2. ENTOCORT EC [Concomitant]
  3. IMODIUM MULTI-SYMPTOM RELIEF [Concomitant]
  4. CIMZIA [Suspect]
     Indication: CROHN'S DISEASE
     Dosage: 400 MG 1X/MONTH SUBCUTANEOUS
     Route: 058
     Dates: start: 20100616
  5. BENTYL [Concomitant]
  6. FERROUS SULFATE TAB [Concomitant]
  7. CORTIFOAM [Concomitant]

REACTIONS (8)
  - DIARRHOEA HAEMORRHAGIC [None]
  - STRESS [None]
  - ABDOMINAL PAIN [None]
  - VOMITING [None]
  - FREQUENT BOWEL MOVEMENTS [None]
  - CROHN'S DISEASE [None]
  - INSOMNIA [None]
  - RETCHING [None]
